FAERS Safety Report 5058151-7 (Version None)
Quarter: 2006Q3

REPORT INFORMATION
  Report Type: 
  Country: None (occurrence: None)
  Receive Date: 20060721
  Receipt Date: 20060525
  Transmission Date: 20061208
  Serious: Yes (Other)
  Sender: FDA-Public Use
  Company Number: US-ROCHE-449763

PATIENT
  Sex: Male
  Weight: 3.7 kg

DRUGS (6)
  1. ACCUTANE [Suspect]
     Indication: ACNE
     Dosage: INDICATION REPORTED AS CYSTIC ACNE.
     Dates: start: 19980318, end: 19980719
  2. ACCUTANE [Suspect]
     Dosage: INDICATION REPORTED AS NODULAR ACNE.
     Dates: start: 19980212, end: 19980317
  3. PREDNISONE [Concomitant]
     Indication: CROHN'S DISEASE
     Dosage: TREATED WITH PREDNISONE 40 MG FOR THREE DAYS, 30 MG FOR THREE DAYS, 20 MG FOR A WEEK AND 10 MG FOR +
     Dates: start: 20020716
  4. VITAMIN AND MINERAL PRENATAL SUPPLEMENT W/ FOLIC ACID CAP [Concomitant]
  5. IRON TABLETS [Concomitant]
     Dates: start: 20030108
  6. ASACOL [Concomitant]

REACTIONS (2)
  - DIARRHOEA [None]
  - INFANT [None]
